FAERS Safety Report 6348646-8 (Version None)
Quarter: 2009Q3

REPORT INFORMATION
  Report Type: 
  Country: None (occurrence: None)
  Receive Date: 20090911
  Receipt Date: 20090828
  Transmission Date: 20100115
  Serious: No
  Sender: FDA-Public Use
  Company Number: US-BAYER-200916557NA

PATIENT
  Age: 71 Year
  Sex: Male

DRUGS (3)
  1. AVELOX [Suspect]
     Indication: UPPER RESPIRATORY TRACT INFECTION
     Dosage: TOTAL DAILY DOSE: 400 MG  UNIT DOSE: 400 MG
     Route: 048
     Dates: start: 20090311
  2. BENICAR [Concomitant]
  3. ASPIRIN [Concomitant]
     Dosage: 4 TIMES/WEEK

REACTIONS (16)
  - ABASIA [None]
  - ADVERSE EVENT [None]
  - ARTHRALGIA [None]
  - CHEST PAIN [None]
  - ERYTHEMA [None]
  - JOINT SWELLING [None]
  - LIGAMENT PAIN [None]
  - LIMB DISCOMFORT [None]
  - LYMPH NODE PAIN [None]
  - MUSCULOSKELETAL DISCOMFORT [None]
  - NECK PAIN [None]
  - OEDEMA PERIPHERAL [None]
  - PAIN [None]
  - SKIN DISCOLOURATION [None]
  - TENDON DISORDER [None]
  - TENDON PAIN [None]
